FAERS Safety Report 23733889 (Version 1)
Quarter: 2024Q2

REPORT INFORMATION
  Report Type: Spontaneous
  Country: KR (occurrence: KR)
  Receive Date: 20240412
  Receipt Date: 20240412
  Transmission Date: 20240716
  Serious: Yes (Other)
  Sender: FDA-Public Use
  Company Number: KR-KYOWAKIRIN-2024KK008088

PATIENT
  Age: 59 Year
  Sex: Male

DRUGS (4)
  1. NEULASTA [Suspect]
     Active Substance: PEGFILGRASTIM
     Indication: Hodgkin^s disease
     Dosage: UNK
     Route: 065
     Dates: start: 20211112
  2. DACARBAZINE [Suspect]
     Active Substance: DACARBAZINE
     Indication: Hodgkin^s disease
     Dosage: 375 MG/M2
     Route: 065
  3. DOXORUBICIN HYDROCHLORIDE [Suspect]
     Active Substance: DOXORUBICIN HYDROCHLORIDE
     Indication: Hodgkin^s disease
     Dosage: 25 MG/M2
     Route: 065
  4. VINBLASTINE SULFATE [Suspect]
     Active Substance: VINBLASTINE SULFATE
     Indication: Hodgkin^s disease
     Dosage: 6 MG/M2
     Route: 065

REACTIONS (4)
  - Neuropathy peripheral [Unknown]
  - COVID-19 [Unknown]
  - Spinal disorder [Unknown]
  - Joint stiffness [Unknown]

NARRATIVE: CASE EVENT DATE: 20220425
